FAERS Safety Report 22351031 (Version 1)
Quarter: 2023Q2

REPORT INFORMATION
  Report Type: Spontaneous
  Country: US (occurrence: None)
  Receive Date: 20230520
  Receipt Date: 20230520
  Transmission Date: 20230722
  Serious: No
  Sender: FDA-Public Use
  Company Number: None

PATIENT
  Age: 62 Year
  Sex: Male
  Weight: 88.45 kg

DRUGS (19)
  1. INLYTA [Suspect]
     Active Substance: AXITINIB
     Indication: Renal cancer recurrent
     Dosage: OTHER FREQUENCY : Q 12 HOURS;?
     Route: 048
     Dates: start: 20230330
  2. AMLODIPINE [Concomitant]
     Active Substance: AMLODIPINE BESYLATE
  3. ATORVASTATIN [Concomitant]
     Active Substance: ATORVASTATIN
  4. CREON [Concomitant]
     Active Substance: PANCRELIPASE AMYLASE\PANCRELIPASE LIPASE\PANCRELIPASE PROTEASE
  5. ESOMEPRAZOLE [Concomitant]
     Active Substance: ESOMEPRAZOLE
  6. FAMOTIDINE [Concomitant]
     Active Substance: FAMOTIDINE
  7. FINASTERIDE [Concomitant]
     Active Substance: FINASTERIDE
  8. FLONASE [Concomitant]
     Active Substance: FLUTICASONE PROPIONATE
  9. GABAPENTIN [Concomitant]
     Active Substance: GABAPENTIN
  10. HYDROXYZINE [Concomitant]
     Active Substance: HYDROXYZINE HYDROCHLORIDE
  11. INSULIN NOS [Concomitant]
     Active Substance: INSULIN NOS
  12. INSULIN LISPRO [Concomitant]
     Active Substance: INSULIN LISPRO
  13. LANTUS [Concomitant]
     Active Substance: INSULIN GLARGINE
  14. LISINOPRIL [Concomitant]
     Active Substance: LISINOPRIL
  15. NORCO [Concomitant]
     Active Substance: ACETAMINOPHEN\HYDROCODONE BITARTRATE
  16. ASPIRIN (CHILDREN) [Concomitant]
  17. TAMSULOSIN [Concomitant]
     Active Substance: TAMSULOSIN
  18. TYLENOL [Concomitant]
     Active Substance: ACETAMINOPHEN
  19. VITAMIN D3 [Concomitant]
     Active Substance: CHOLECALCIFEROL

REACTIONS (2)
  - Fatigue [None]
  - Hypoglycaemia [None]
